FAERS Safety Report 6095098-1 (Version None)
Quarter: 2009Q1

REPORT INFORMATION
  Report Type: 
  Country: None (occurrence: None)
  Receive Date: 20090227
  Receipt Date: 20080118
  Transmission Date: 20090719
  Serious: No
  Sender: FDA-Public Use
  Company Number: A0704124A

PATIENT
  Age: 50 Year
  Sex: Male

DRUGS (3)
  1. LAMICTAL [Suspect]
     Indication: BIPOLAR DISORDER
     Dosage: 25MG PER DAY
     Route: 048
     Dates: start: 20080114
  2. WELLBUTRIN SR [Suspect]
     Dosage: 1TAB TWICE PER DAY
     Route: 048
     Dates: start: 20060101, end: 20060101
  3. SYMBYAX [Concomitant]

REACTIONS (4)
  - DISSOCIATION [None]
  - LIBIDO DECREASED [None]
  - PARAESTHESIA [None]
  - POOR QUALITY SLEEP [None]
